FAERS Safety Report 22587020 (Version 2)
Quarter: 2023Q2

REPORT INFORMATION
  Report Type: Spontaneous
  Country: ES (occurrence: ES)
  Receive Date: 20230612
  Receipt Date: 20230614
  Transmission Date: 20230722
  Serious: Yes (Life-Threatening, Hospitalization, Other)
  Sender: FDA-Public Use
  Company Number: None

PATIENT
  Age: 76 Year
  Sex: Male

DRUGS (1)
  1. LEVOFLOXACIN [Suspect]
     Active Substance: LEVOFLOXACIN
     Indication: Respiratory tract infection
     Dosage: UNK,  UNK

REACTIONS (3)
  - Myasthenia gravis crisis [Recovering/Resolving]
  - Pneumonia aspiration [Recovering/Resolving]
  - Respiratory failure [Recovering/Resolving]
